FAERS Safety Report 7897036-5 (Version None)
Quarter: 2011Q4

REPORT INFORMATION
  Report Type: 
  Country: None (occurrence: None)
  Receive Date: 20111104
  Receipt Date: 20111104
  Transmission Date: 20120403
  Serious: Yes (Life-Threatening, Disabling, Other)
  Sender: FDA-Public Use
  Company Number: None

PATIENT

DRUGS (1)
  1. COLCRYS [Suspect]

REACTIONS (4)
  - PARAESTHESIA [None]
  - DYSPEPSIA [None]
  - THROAT IRRITATION [None]
  - HAEMATOCHEZIA [None]
